FAERS Safety Report 6834149-0 (Version None)
Quarter: 2010Q3

REPORT INFORMATION
  Report Type: 
  Country: None (occurrence: None)
  Receive Date: 20100712
  Receipt Date: 20070611
  Transmission Date: 20110219
  Serious: No
  Sender: FDA-Public Use
  Company Number: US-PFIZER INC-2007033779

PATIENT
  Sex: Female
  Weight: 100 kg

DRUGS (9)
  1. CHANTIX [Suspect]
     Indication: SMOKING CESSATION THERAPY
     Dates: start: 20070414
  2. GEODON [Concomitant]
  3. LEXAPRO [Concomitant]
  4. MAGNESIUM [Concomitant]
  5. NIACIN [Concomitant]
  6. VITAMINS [Concomitant]
  7. SPIRIVA [Concomitant]
  8. PULMICORT [Concomitant]
  9. FORADIL [Concomitant]

REACTIONS (9)
  - DECREASED APPETITE [None]
  - DRUG INEFFECTIVE [None]
  - EAR PAIN [None]
  - FEELING JITTERY [None]
  - HYPOACUSIS [None]
  - NASAL CONGESTION [None]
  - NAUSEA [None]
  - OROPHARYNGEAL PAIN [None]
  - SNEEZING [None]
